FAERS Safety Report 4409550-5 (Version None)
Quarter: 2004Q3

REPORT INFORMATION
  Report Type: 
  Country: None (occurrence: None)
  Receive Date: 20040723
  Receipt Date: 20040712
  Transmission Date: 20050211
  Serious: Yes (Hospitalization)
  Sender: FDA-Public Use
  Company Number: 2004CG01382

PATIENT
  Age: 63 Year
  Sex: Female
  Weight: 60 kg

DRUGS (4)
  1. IRESSA [Suspect]
     Indication: BRONCHIAL CARCINOMA
     Dosage: 250 MG QD PO
     Route: 048
     Dates: start: 20040604, end: 20040628
  2. OMEPRAZOLE [Concomitant]
  3. DURAGESIC [Concomitant]
  4. DIAMICRON [Concomitant]

REACTIONS (5)
  - ABDOMINAL PAIN [None]
  - ABDOMINAL RIGIDITY [None]
  - DIZZINESS [None]
  - FREQUENT BOWEL MOVEMENTS [None]
  - MALAISE [None]
